FAERS Safety Report 22106644 (Version 4)
Quarter: 2024Q2

REPORT INFORMATION
  Report Type: Report from Study
  Country: GR (occurrence: GR)
  Receive Date: 20230317
  Receipt Date: 20240527
  Transmission Date: 20240715
  Serious: Yes (Other)
  Sender: FDA-Public Use
  Company Number: GR-ABBVIE-4344242

PATIENT
  Age: 62 Year
  Sex: Female
  Weight: 52 kg

DRUGS (22)
  1. UPADACITINIB [Suspect]
     Active Substance: UPADACITINIB
     Indication: Rheumatoid arthritis
     Route: 048
     Dates: start: 20220911, end: 20230121
  2. UPADACITINIB [Suspect]
     Active Substance: UPADACITINIB
     Indication: Rheumatoid arthritis
     Route: 048
     Dates: start: 20210914, end: 20220826
  3. CALCIUM;CALCIUM CARBONATE;COLECALCIFEROL [Concomitant]
     Indication: Osteoporosis
     Dosage: CALCIUM CARBONATE,CHOLECALCIFEROL CONCENTRATE
     Route: 048
     Dates: start: 2016
  4. SARS-CoV-2 Vaccine [Concomitant]
     Indication: COVID-19 immunisation
     Route: 030
     Dates: start: 20210410, end: 20210410
  5. SARS-CoV-2 Vaccine [Concomitant]
     Indication: COVID-19 immunisation
     Route: 030
     Dates: start: 20211001, end: 20211001
  6. SARS-CoV-2 Vaccine [Concomitant]
     Indication: COVID-19 immunisation
     Route: 030
     Dates: start: 20220312, end: 20220312
  7. SARS-CoV-2 Vaccine [Concomitant]
     Indication: COVID-19 immunisation
     Route: 030
     Dates: start: 20220829, end: 20220829
  8. METHOTREXATE [Concomitant]
     Active Substance: METHOTREXATE
     Indication: Rheumatoid arthritis
     Route: 048
     Dates: start: 2016, end: 20220827
  9. METHOTREXATE [Concomitant]
     Active Substance: METHOTREXATE
     Indication: Rheumatoid arthritis
     Route: 048
     Dates: start: 20220911, end: 20230121
  10. METHIMAZOLE [Concomitant]
     Active Substance: METHIMAZOLE
     Indication: Hyperthyroidism
     Route: 048
     Dates: start: 2001
  11. DENOSUMAB [Concomitant]
     Active Substance: DENOSUMAB
     Indication: Osteoporosis
     Route: 058
     Dates: start: 20220615
  12. FOLIC ACID [Concomitant]
     Active Substance: FOLIC ACID
     Indication: Prophylaxis
     Route: 048
     Dates: start: 2016, end: 20230121
  13. ATORVASTATIN [Concomitant]
     Active Substance: ATORVASTATIN
     Indication: Hyperlipidaemia
     Route: 048
     Dates: start: 201012
  14. ASPIRIN [Concomitant]
     Active Substance: ASPIRIN
     Indication: Carotid artery stenosis
     Route: 048
     Dates: start: 20220815
  15. FLUCONAZOLE [Concomitant]
     Active Substance: FLUCONAZOLE
     Indication: Onychomycosis
     Route: 048
     Dates: start: 20220909, end: 20220925
  16. RISEDRONATE SODIUM [Concomitant]
     Active Substance: RISEDRONATE SODIUM
     Indication: Osteoporosis
     Route: 048
     Dates: start: 2016, end: 20220601
  17. PREDNISOLONE [Concomitant]
     Active Substance: PREDNISOLONE
     Indication: Rheumatoid arthritis
     Route: 048
     Dates: start: 2016, end: 20211213
  18. PREDNISOLONE [Concomitant]
     Active Substance: PREDNISOLONE
     Indication: Rheumatoid arthritis
     Route: 048
     Dates: start: 20211214, end: 20220307
  19. PREDNISOLONE [Concomitant]
     Active Substance: PREDNISOLONE
     Indication: Rheumatoid arthritis
     Route: 048
     Dates: start: 20220308, end: 20220314
  20. PREDNISOLONE [Concomitant]
     Active Substance: PREDNISOLONE
     Indication: Rheumatoid arthritis
     Route: 048
     Dates: start: 20220315, end: 20220325
  21. PREDNISOLONE [Concomitant]
     Active Substance: PREDNISOLONE
     Indication: Rheumatoid arthritis
     Route: 048
     Dates: start: 20220326, end: 20220405
  22. PREDNISOLONE [Concomitant]
     Active Substance: PREDNISOLONE
     Indication: Rheumatoid arthritis
     Route: 048
     Dates: start: 20220406

REACTIONS (3)
  - Endometrial hyperplasia [Not Recovered/Not Resolved]
  - Endometrial disorder [Not Recovered/Not Resolved]
  - Neoplasm malignant [Not Recovered/Not Resolved]

NARRATIVE: CASE EVENT DATE: 20230121
